FAERS Safety Report 8100933-9 (Version None)
Quarter: 2012Q1

REPORT INFORMATION
  Report Type: 
  Country: None (occurrence: None)
  Receive Date: 20120129
  Receipt Date: 20110920
  Transmission Date: 20120608
  Serious: No
  Sender: FDA-Public Use
  Company Number: US-ABBOTT-11P-163-0856413-00

PATIENT
  Sex: Female
  Weight: 81.72 kg

DRUGS (4)
  1. VITAMIN D [Concomitant]
     Indication: PRODUCT USED FOR UNKNOWN INDICATION
  2. UNKNOWN MEDICATION [Concomitant]
     Indication: THYROID DISORDER
  3. HUMIRA [Suspect]
     Indication: PSORIATIC ARTHROPATHY
     Dates: start: 20080101
  4. UNKNOWN MEDICATION [Concomitant]
     Indication: MUSCLE RELAXANT THERAPY

REACTIONS (5)
  - SINUSITIS [None]
  - NASAL CONGESTION [None]
  - EAR DISCOMFORT [None]
  - DYSPNOEA [None]
  - PRODUCT QUALITY ISSUE [None]
